FAERS Safety Report 17116511 (Version 1)
Quarter: 2019Q4

REPORT INFORMATION
  Report Type: Spontaneous
  Country: US (occurrence: US)
  Receive Date: 20191204
  Receipt Date: 20191204
  Transmission Date: 20200122
  Serious: Yes (Other)
  Sender: FDA-Public Use
  Company Number: None

PATIENT
  Age: 53 Year
  Sex: Female
  Weight: 129.27 kg

DRUGS (2)
  1. XOLAIR [Suspect]
     Active Substance: OMALIZUMAB
     Indication: CHRONIC SPONTANEOUS URTICARIA
     Route: 058
     Dates: start: 20190702
  2. XOLAIR [Suspect]
     Active Substance: OMALIZUMAB
     Dates: start: 20190702, end: 20191015

REACTIONS (3)
  - Alopecia [None]
  - Muscle spasms [None]
  - Hirsutism [None]

NARRATIVE: CASE EVENT DATE: 20190802
